FAERS Safety Report 7492057-9 (Version None)
Quarter: 2011Q2

REPORT INFORMATION
  Report Type: 
  Country: None (occurrence: None)
  Receive Date: 20110519
  Receipt Date: 20110510
  Transmission Date: 20111010
  Serious: Yes (Death)
  Sender: FDA-Public Use
  Company Number: GB-BRISTOL-MYERS SQUIBB COMPANY-15747959

PATIENT
  Age: 85 Year
  Sex: Male

DRUGS (1)
  1. MITOMYCIN [Suspect]

REACTIONS (1)
  - ANAPHYLACTIC REACTION [None]
